FAERS Safety Report 8885988 (Version 4)
Quarter: 2013Q1

REPORT INFORMATION
  Report Type: Spontaneous
  Country: CO (occurrence: CO)
  Receive Date: 20121105
  Receipt Date: 20130312
  Transmission Date: 20140127
  Serious: Yes (Hospitalization, Other)
  Sender: FDA-Public Use
  Company Number: CO-ROCHE-1152417

PATIENT
  Age: 73 Year
  Sex: Male

DRUGS (13)
  1. LUCENTIS [Suspect]
     Indication: OCULAR DISCOMFORT
     Route: 050
     Dates: start: 20120817
  2. LUCENTIS [Suspect]
     Route: 050
     Dates: start: 20120928
  3. LUCENTIS [Suspect]
     Route: 050
     Dates: start: 20130131
  4. LOSARTAN POTASSIUM [Concomitant]
  5. LANITOP [Concomitant]
  6. RANITIDINE [Concomitant]
  7. CALCITONIN [Concomitant]
     Dosage: DRUG: CALCITRINUM
     Route: 065
  8. ASPIRIN [Concomitant]
  9. FUROSEMIDE [Concomitant]
  10. CARVEDILOL [Concomitant]
  11. CLOPIDOGREL [Concomitant]
  12. SPIRONOLACTONE [Concomitant]
  13. MIRTAZAPINE [Concomitant]

REACTIONS (2)
  - Myocardial infarction [Recovered/Resolved]
  - Cardiac failure [Recovered/Resolved]
